FAERS Safety Report 23664307 (Version 2)
Quarter: 2024Q1

REPORT INFORMATION
  Report Type: Spontaneous
  Country: US (occurrence: US)
  Receive Date: 20240322
  Receipt Date: 20240327
  Transmission Date: 20240410
  Serious: Yes (Life-Threatening, Hospitalization, Other)
  Sender: FDA-Public Use
  Company Number: None

PATIENT
  Age: 52 Year
  Sex: Male

DRUGS (17)
  1. FLUOXETINE [Suspect]
     Active Substance: FLUOXETINE HYDROCHLORIDE
     Indication: Depression
     Dosage: 20 MILLIGRAM PER DAY
     Route: 048
  2. FLUOXETINE [Suspect]
     Active Substance: FLUOXETINE HYDROCHLORIDE
     Indication: Anxiety
     Dosage: 30 MILLIGRAM DAILY
     Route: 048
  3. FLUOXETINE [Suspect]
     Active Substance: FLUOXETINE HYDROCHLORIDE
     Indication: Post-traumatic stress disorder
  4. GABAPENTIN [Suspect]
     Active Substance: GABAPENTIN
     Indication: Radiculopathy
     Dosage: 800 MILLIGRAM, EVERY 12 HRS, PO BID PRN
     Route: 048
  5. ARIPIPRAZOLE [Concomitant]
     Active Substance: ARIPIPRAZOLE
     Indication: Post-traumatic stress disorder
     Dosage: 2.5 MILLIGRAM, PER DAYPO QAM
     Route: 048
  6. SIMVASTATIN [Concomitant]
     Active Substance: SIMVASTATIN
     Indication: Hyperlipidaemia
     Dosage: 20 MILLIGRAM PER DAY,QHS
     Route: 048
  7. ACETAMINOPHEN AND CODEINE [Concomitant]
     Active Substance: ACETAMINOPHEN\CODEINE PHOSPHATE
     Indication: Procedural pain
     Dosage: UNK, EVERY 6 HRS, PO Q6H PRN
     Route: 048
  8. ACETAMINOPHEN AND CODEINE [Concomitant]
     Active Substance: ACETAMINOPHEN\CODEINE PHOSPHATE
     Dosage: 1 DOSAGE FORM
     Route: 048
  9. CYCLOBENZAPRINE [Concomitant]
     Active Substance: CYCLOBENZAPRINE
     Indication: Muscle spasms
     Dosage: 10 MILLIGRAM, EVERY 8 HOURS, PRN
     Route: 048
  10. CALCIUM\CHOLECALCIFEROL [Concomitant]
     Active Substance: CALCIUM\CHOLECALCIFEROL
     Indication: Supplementation therapy
     Dosage: UNK PER DAY
     Route: 048
  11. HYDROXYZINE [Concomitant]
     Active Substance: HYDROXYZINE HYDROCHLORIDE
     Indication: Anxiety
     Dosage: 25 MILLIGRAM, EVERY 6 HRS (25MG PO Q6H )
     Route: 048
  12. ESCITALOPRAM [Concomitant]
     Active Substance: ESCITALOPRAM OXALATE
     Indication: Depression
     Dosage: 10 MILLIGRAM/DAILY
     Route: 065
  13. ESCITALOPRAM [Concomitant]
     Active Substance: ESCITALOPRAM OXALATE
     Indication: Anxiety
  14. BUPROPION [Concomitant]
     Active Substance: BUPROPION
     Indication: Depression
     Dosage: 300 MILLIGRAM/DAILY
     Route: 065
  15. BUPROPION [Concomitant]
     Active Substance: BUPROPION
     Indication: Anxiety
  16. CYANOCOBALAMIN\DEXPANTHENOL\NIACINAMIDE\PYRIDOXINE HYDROCHLORIDE\RIBOF [Concomitant]
     Active Substance: CYANOCOBALAMIN\DEXPANTHENOL\NIACINAMIDE\PYRIDOXINE HYDROCHLORIDE\RIBOFLAVIN 5^-PHOSPHATE SODIUM\THIA
     Indication: Vitamin supplementation
     Dosage: UNK, PO DAILY
     Route: 048
  17. VITAMINS [Concomitant]
     Active Substance: VITAMINS
     Indication: Vitamin supplementation
     Dosage: UNK, QD, PO ONCE DAILY
     Route: 048

REACTIONS (5)
  - Post procedural haemorrhage [Unknown]
  - Antidepressant drug level increased [Unknown]
  - Blindness transient [Unknown]
  - Hypotension [Unknown]
  - Off label use [Unknown]
